FAERS Safety Report 10579731 (Version 1)
Quarter: 2014Q4

REPORT INFORMATION
  Report Type: Spontaneous
  Country: US (occurrence: US)
  Receive Date: 20141112
  Receipt Date: 20141112
  Transmission Date: 20150529
  Serious: No
  Sender: FDA-Public Use
  Company Number: US-MALLINCKRODT-T201402252

PATIENT
  Age: 18 Year
  Sex: Female

DRUGS (1)
  1. OFIRMEV [Suspect]
     Active Substance: ACETAMINOPHEN
     Indication: PAIN
     Dosage: 1 G, SINGLE
     Route: 042
     Dates: start: 20140519, end: 20140519

REACTIONS (1)
  - Injection site extravasation [Recovering/Resolving]

NARRATIVE: CASE EVENT DATE: 20140519
